FAERS Safety Report 7065765-1 (Version None)
Quarter: 2010Q4

REPORT INFORMATION
  Report Type: 
  Country: None (occurrence: None)
  Receive Date: 20101027
  Receipt Date: 20101022
  Transmission Date: 20110411
  Serious: Yes (Death, Hospitalization, Other)
  Sender: FDA-Public Use
  Company Number: PHHY2010JP64448

PATIENT
  Sex: Female
  Weight: 33 kg

DRUGS (14)
  1. DIOVAN [Suspect]
     Indication: HYPERTENSION
     Dosage: 80 MG, UNK
     Route: 048
     Dates: start: 20090713, end: 20100413
  2. AZELASTINE HCL [Concomitant]
     Indication: HYPERTENSION
     Dosage: 16 MG, UNK
     Route: 048
     Dates: start: 20090713, end: 20091029
  3. ADALAT CC [Concomitant]
     Indication: HYPERTENSION
     Dosage: 40 MG, UNK
     Route: 048
     Dates: start: 20091030, end: 20100413
  4. NOVORAPID [Concomitant]
     Dosage: UNK
     Route: 058
     Dates: start: 20090218, end: 20100413
  5. GRIMAC [Concomitant]
     Dosage: 1.5 G, UNK
     Route: 048
     Dates: end: 20100413
  6. BERIZYM [Concomitant]
     Dosage: 1 G, UNK
     Route: 048
     Dates: end: 20100413
  7. REMODELLIN [Concomitant]
     Dosage: 1 DF, UNK
     Route: 048
     Dates: end: 20100413
  8. AMARYL [Concomitant]
     Dosage: 1 MG, UNK
     Route: 048
     Dates: start: 20080522, end: 20100413
  9. 8-HOUR BAYER [Concomitant]
     Dosage: 100 MG, UNK
     Route: 048
     Dates: end: 20100413
  10. THEO SLOW [Concomitant]
     Dosage: 200 MG, UNK
     Route: 048
     Dates: end: 20100413
  11. TULOBUTEROL HYDROCHLORIDE [Concomitant]
     Dosage: 3 MG, UNK
     Route: 048
     Dates: end: 20100413
  12. MAGNESIUM OXIDE [Concomitant]
     Dosage: 2 G, UNK
     Route: 048
     Dates: end: 20100413
  13. CYANOCOBALAMIN [Concomitant]
     Dosage: 1500 UG, UNK
     Route: 048
     Dates: end: 20100413
  14. MEPTIN [Concomitant]
     Dosage: 1 DF, UNK
     Dates: end: 20100413

REACTIONS (8)
  - ASPHYXIA [None]
  - ASPIRATION [None]
  - BLOOD PRESSURE DIASTOLIC DECREASED [None]
  - DECREASED APPETITE [None]
  - FEMUR FRACTURE [None]
  - GASTROSTOMY [None]
  - INJURY [None]
  - RESPIRATORY ARREST [None]
